FAERS Safety Report 7614152-3 (Version None)
Quarter: 2011Q3

REPORT INFORMATION
  Report Type: 
  Country: None (occurrence: None)
  Receive Date: 20110708
  Receipt Date: 20110622
  Transmission Date: 20111222
  Serious: Yes (Other)
  Sender: FDA-Public Use
  Company Number: 2011P1007339

PATIENT
  Age: 77 Year
  Sex: Male
  Weight: 94.8018 kg

DRUGS (7)
  1. NIACIN [Concomitant]
  2. CARVEDILOL [Concomitant]
  3. WARFARIN SODIUM [Suspect]
     Indication: ATRIAL FIBRILLATION
     Dosage: 5 MG, QD, PO
     Route: 048
     Dates: start: 20101201, end: 20110622
  4. PRAVASTATIN [Concomitant]
  5. LISINOPRIL [Concomitant]
  6. VITAMIN D [Concomitant]
  7. ASPIRIN [Concomitant]

REACTIONS (2)
  - INTERNATIONAL NORMALISED RATIO DECREASED [None]
  - PRODUCT SUBSTITUTION ISSUE [None]
